FAERS Safety Report 7912430-1 (Version None)
Quarter: 2011Q4

REPORT INFORMATION
  Report Type: 
  Country: None (occurrence: None)
  Receive Date: 20111114
  Receipt Date: 20111109
  Transmission Date: 20120403
  Serious: Yes (Other)
  Sender: FDA-Public Use
  Company Number: FR-PFIZER INC-2011274151

PATIENT
  Age: 57 Year
  Sex: Female

DRUGS (2)
  1. ATARAX [Concomitant]
     Dosage: UNK
  2. ATORVASTATIN CALCIUM [Suspect]
     Dosage: 40 MG, DAILY
     Dates: start: 20100101

REACTIONS (9)
  - ABDOMINAL PAIN [None]
  - CONSTIPATION [None]
  - MYALGIA [None]
  - TINNITUS [None]
  - PLATELET COUNT DECREASED [None]
  - MUSCLE SPASMS [None]
  - ALOPECIA [None]
  - HYPOTENSION [None]
  - TREMOR [None]
